FAERS Safety Report 8305487-X (Version None)
Quarter: 2012Q2

REPORT INFORMATION
  Report Type: 
  Country: None (occurrence: None)
  Receive Date: 20120423
  Receipt Date: 20120312
  Transmission Date: 20120825
  Serious: Yes (Other)
  Sender: FDA-Public Use
  Company Number: US-GLAXOSMITHKLINE-A0970214A

PATIENT
  Sex: Female

DRUGS (1)
  1. TYKERB [Suspect]
     Indication: BREAST CANCER
     Dosage: 1250MG SEE DOSAGE TEXT
     Route: 048

REACTIONS (5)
  - PALMAR-PLANTAR ERYTHRODYSAESTHESIA SYNDROME [None]
  - ABDOMINAL PAIN UPPER [None]
  - HEPATIC PAIN [None]
  - SKIN FISSURES [None]
  - NAUSEA [None]
